FAERS Safety Report 7497758-4 (Version None)
Quarter: 2011Q2

REPORT INFORMATION
  Report Type: 
  Country: None (occurrence: None)
  Receive Date: 20110523
  Receipt Date: 20110513
  Transmission Date: 20111010
  Serious: Yes (Other)
  Sender: FDA-Public Use
  Company Number: GB-AMGEN-GBRSP2011025948

PATIENT
  Age: 65 Year
  Sex: Male
  Weight: 85 kg

DRUGS (8)
  1. METHOTREXATE [Concomitant]
     Dosage: 10 MG,  ONCE PER WEEK
  2. FERROUS SULPHATE                   /00023503/ [Concomitant]
     Dosage: UNK UNK, UNK
  3. ALENDRONIC ACID [Concomitant]
     Dosage: 70 MG, WEEKLY
  4. PREDNISOLONE [Concomitant]
     Dosage: 2.5 MG, 1X/DAY
  5. RAMIPRIL [Concomitant]
     Dosage: 5 MG, 1X/DAY
  6. ENBREL [Suspect]
     Indication: RHEUMATOID ARTHRITIS
     Dosage: 50 MG, ONCE PER WEEKLY
     Route: 058
     Dates: start: 20080501
  7. ACETAMINOPHEN AND CODEINE PHOSPHATE [Concomitant]
     Dosage: UNK
  8. LANSOPRAZOLE [Concomitant]
     Dosage: UNK

REACTIONS (3)
  - FACIAL PARESIS [None]
  - APHASIA [None]
  - CEREBROVASCULAR ACCIDENT [None]
